FAERS Safety Report 23295897 (Version 1)
Quarter: 2023Q4

REPORT INFORMATION
  Report Type: Spontaneous
  Country: IT (occurrence: IT)
  Receive Date: 20231214
  Receipt Date: 20231214
  Transmission Date: 20240109
  Serious: Yes (Other)
  Sender: FDA-Public Use
  Company Number: IT-BAXTER-2023BAX037859

PATIENT
  Sex: Male

DRUGS (10)
  1. DOXORUBICIN [Suspect]
     Active Substance: DOXORUBICIN
     Indication: Hodgkin^s disease lymphocyte depletion type stage III
     Dosage: ABVD REGIMEN, THIRD-LINE THERAPY IN APR2020, FOUR CYCLES
     Route: 065
  2. DOXORUBICIN [Suspect]
     Active Substance: DOXORUBICIN
     Indication: Hodgkin^s disease
  3. VINBLASTINE [Suspect]
     Active Substance: VINBLASTINE
     Indication: Hodgkin^s disease lymphocyte depletion type stage III
     Dosage: ABVD/ BV-AVD REGIMEN, THIRD-LINE THERAPY IN APR2020, FOUR CYCLES
     Route: 065
  4. VINBLASTINE [Suspect]
     Active Substance: VINBLASTINE
     Indication: Hodgkin^s disease
  5. DACARBAZINE [Suspect]
     Active Substance: DACARBAZINE
     Indication: Hodgkin^s disease lymphocyte depletion type stage III
     Dosage: ABVD/ BV-AVD REGIMEN, THIRD-LINE THERAPY IN APR2020, FOUR CYCLES
     Route: 065
  6. DACARBAZINE [Suspect]
     Active Substance: DACARBAZINE
     Indication: Hodgkin^s disease
  7. BRENTUXIMAB VEDOTIN [Suspect]
     Active Substance: BRENTUXIMAB VEDOTIN
     Indication: Hodgkin^s disease lymphocyte depletion type stage III
     Dosage: BV-AVD REGIMEN, IN APR2020, CYCLICAL
     Route: 065
  8. BRENTUXIMAB VEDOTIN [Suspect]
     Active Substance: BRENTUXIMAB VEDOTIN
     Indication: Hodgkin^s disease
  9. BLEOMYCIN [Concomitant]
     Active Substance: BLEOMYCIN SULFATE
     Indication: Hodgkin^s disease lymphocyte depletion type stage III
     Dosage: ABVD REGIMEN AS THIRD-LINE THERAPY IN APR2020, CYCLICAL
     Route: 065
  10. BLEOMYCIN [Concomitant]
     Active Substance: BLEOMYCIN SULFATE
     Indication: Hodgkin^s disease

REACTIONS (1)
  - Haematotoxicity [Unknown]
